FAERS Safety Report 11424801 (Version 1)
Quarter: 2015Q3

REPORT INFORMATION
  Report Type: Spontaneous
  Country: US (occurrence: US)
  Receive Date: 20150821
  Receipt Date: 20150821
  Transmission Date: 20151125
  Serious: No
  Sender: FDA-Public Use
  Company Number: US-ELI_LILLY_AND_COMPANY-US201210005525

PATIENT
  Age: 75 Year
  Sex: Female

DRUGS (3)
  1. HUMULIN N [Suspect]
     Active Substance: INSULIN HUMAN
     Indication: DIABETES MELLITUS
     Dosage: 30 U, QD
  2. HUMULIN N [Suspect]
     Active Substance: INSULIN HUMAN
     Dosage: 45 U, QD
  3. LEVEMIR [Concomitant]
     Active Substance: INSULIN DETEMIR
     Dosage: UNK, UNKNOWN

REACTIONS (5)
  - Incorrect dose administered [Unknown]
  - Incorrect dose administered [Unknown]
  - Memory impairment [Unknown]
  - Hypoglycaemia [Recovered/Resolved]
  - Bacterial infection [Unknown]

NARRATIVE: CASE EVENT DATE: 20121016
